FAERS Safety Report 5636049-0 (Version None)
Quarter: 2008Q1

REPORT INFORMATION
  Report Type: 
  Country: None (occurrence: None)
  Receive Date: 20080220
  Receipt Date: 20080220
  Transmission Date: 20080703
  Serious: Yes (Other)
  Sender: FDA-Public Use
  Company Number: None

PATIENT
  Sex: Female
  Weight: 213.1906 kg

DRUGS (1)
  1. GEODON [Suspect]
     Indication: BIPOLAR I DISORDER
     Dosage: 60 MG 2 AT HS PO
     Route: 048
     Dates: start: 20071113, end: 20080219

REACTIONS (1)
  - TYPE 2 DIABETES MELLITUS [None]
